FAERS Safety Report 24986983 (Version 2)
Quarter: 2025Q1

REPORT INFORMATION
  Report Type: Spontaneous
  Country: IE (occurrence: IE)
  Receive Date: 20250219
  Receipt Date: 20250221
  Transmission Date: 20250409
  Serious: Yes (Other)
  Sender: AMERICAN REGENT
  Company Number: IE-AMERICAN REGENT INC-2025000742

PATIENT
  Age: 46 Year
  Sex: Female

DRUGS (1)
  1. FERINJECT [Suspect]
     Active Substance: FERRIC CARBOXYMALTOSE
     Indication: Product used for unknown indication
     Route: 065
     Dates: start: 20250206

REACTIONS (7)
  - Feeling cold [Unknown]
  - Skin tightness [Unknown]
  - Paraesthesia oral [Unknown]
  - Blood pressure increased [Unknown]
  - Chills [Unknown]
  - Rash [Unknown]
  - Urticaria [Unknown]

NARRATIVE: CASE EVENT DATE: 20250201
